FAERS Safety Report 6215477-9 (Version None)
Quarter: 2009Q2

REPORT INFORMATION
  Report Type: 
  Country: None (occurrence: None)
  Receive Date: 20090603
  Receipt Date: 20090525
  Transmission Date: 20091009
  Serious: Yes (Death)
  Sender: FDA-Public Use
  Company Number: GXKR2009ES06128

PATIENT
  Age: 56 Year
  Sex: Male

DRUGS (5)
  1. SIMVASTATIN [Suspect]
     Indication: BLOOD CHOLESTEROL INCREASED
     Dosage: 10 MG/DAY,
  2. TACROLIMUS [Suspect]
     Indication: IMMUNOSUPPRESSION
  3. SIROLIMUS (SIROLIMUS) [Suspect]
     Indication: IMMUNOSUPPRESSION
     Dates: start: 20070701
  4. SIROLIMUS (SIROLIMUS) [Suspect]
     Indication: TRANSPLANT REJECTION
     Dates: start: 20070701
  5. MYCOPHENOLATE MOFETIL [Concomitant]

REACTIONS (10)
  - AREFLEXIA [None]
  - DIALYSIS [None]
  - DRUG INTERACTION [None]
  - HYPERKALAEMIA [None]
  - POST PROCEDURAL COMPLICATION [None]
  - QUADRIPARESIS [None]
  - RENAL FAILURE ACUTE [None]
  - RESPIRATORY FAILURE [None]
  - RHABDOMYOLYSIS [None]
  - VENTRICULAR FIBRILLATION [None]
